FAERS Safety Report 13146250 (Version 2)
Quarter: 2017Q2

REPORT INFORMATION
  Report Type: Report from Study
  Country: CZ (occurrence: CZ)
  Receive Date: 20170125
  Receipt Date: 20170418
  Transmission Date: 20170830
  Serious: Yes (Hospitalization, Other)
  Sender: FDA-Public Use
  Company Number: CZ-BAXTER-2016BAX039481

PATIENT
  Age: 68 Year
  Sex: Female

DRUGS (49)
  1. 0,9% SODIUM CHLORIDE INTRAVENOUS INFUSION BP BAXTER [Suspect]
     Active Substance: SODIUM CHLORIDE
     Indication: DEHYDRATION
     Route: 065
     Dates: start: 20160612, end: 20160616
  2. VENETOCLAX [Suspect]
     Active Substance: VENETOCLAX
     Dosage: MOST RECENT DOSE
     Route: 048
     Dates: start: 20160713
  3. BISEPTOL [Concomitant]
     Active Substance: SULFAMETHOXAZOLE\TRIMETHOPRIM
     Indication: ANTIFUNGAL PROPHYLAXIS
     Route: 065
     Dates: start: 20160714, end: 20160725
  4. SOLU-MEDROL [Concomitant]
     Active Substance: METHYLPREDNISOLONE SODIUM SUCCINATE
     Indication: PREMEDICATION
     Route: 042
     Dates: start: 20160704, end: 20160704
  5. PROPAFENON [Concomitant]
     Active Substance: PROPAFENONE
     Indication: ATRIAL FIBRILLATION
     Route: 065
     Dates: start: 20160614, end: 20160614
  6. CLOTRIMAZOL [Concomitant]
     Active Substance: CLOTRIMAZOLE
     Indication: FUNGAL SKIN INFECTION
     Route: 065
     Dates: start: 20160620, end: 20160627
  7. FURON [Concomitant]
     Active Substance: FUROSEMIDE
     Indication: OEDEMA PERIPHERAL
     Route: 065
     Dates: start: 20160620, end: 20160704
  8. DETRALEX [Concomitant]
     Active Substance: DIOSMIN\HESPERIDIN
     Indication: OEDEMA PERIPHERAL
     Route: 065
     Dates: start: 20160628
  9. PROTHAZIN [Concomitant]
     Indication: DRUG THERAPY
     Route: 065
     Dates: start: 20160714, end: 20160717
  10. 0,9% SODIUM CHLORIDE INTRAVENOUS INFUSION BP BAXTER [Suspect]
     Active Substance: SODIUM CHLORIDE
     Indication: DIARRHOEA
     Dosage: REHYDRATION DURING HOSPITALISATION
     Route: 065
     Dates: start: 20160714, end: 20160718
  11. BETALOC SR [Concomitant]
     Indication: HYPERTENSION
  12. LETROX [Concomitant]
     Active Substance: LEVOTHYROXINE SODIUM
     Indication: HYPOTHYROIDISM
     Route: 065
  13. FILGRASTIM [Concomitant]
     Active Substance: FILGRASTIM
     Indication: NEUTROPENIA
     Route: 065
     Dates: start: 20160615, end: 20160619
  14. KALNORMIN [Concomitant]
     Active Substance: POTASSIUM CHLORIDE
     Indication: ATRIAL FIBRILLATION
     Route: 065
     Dates: start: 20160615, end: 20160616
  15. KALNORMIN [Concomitant]
     Active Substance: POTASSIUM CHLORIDE
     Indication: PROPHYLAXIS
     Route: 065
     Dates: start: 20160620, end: 20160713
  16. BISEPTOL [Concomitant]
     Active Substance: SULFAMETHOXAZOLE\TRIMETHOPRIM
     Indication: PROPHYLAXIS
     Route: 065
     Dates: start: 20160615, end: 20160620
  17. HELICID [Concomitant]
     Indication: PROPHYLAXIS AGAINST GASTROINTESTINAL ULCER
     Route: 065
     Dates: start: 20160704, end: 20160708
  18. DIFLUCAN [Concomitant]
     Active Substance: FLUCONAZOLE
     Indication: PROPHYLAXIS
     Route: 065
     Dates: start: 20160713, end: 20160715
  19. TANTUM VERDE [Concomitant]
     Active Substance: BENZYDAMINE HYDROCHLORIDE
     Route: 065
     Dates: start: 20160714, end: 20160715
  20. PURINOL [Concomitant]
     Active Substance: ALLOPURINOL
     Indication: HYPERURICAEMIA
     Dosage: ONGOING
     Route: 065
     Dates: start: 20160715
  21. NOVALGIN [Concomitant]
     Active Substance: METAMIZOLE SODIUM
     Indication: ANTIPYRESIS
     Route: 065
     Dates: start: 20160715, end: 20160715
  22. ANALERGIN (CETIRIZINE HYDROCHLORIDE) [Concomitant]
     Active Substance: CETIRIZINE HYDROCHLORIDE
     Indication: PREMEDICATION
     Route: 065
     Dates: start: 20160704, end: 20160704
  23. ENDOXAN 1G [Suspect]
     Active Substance: CYCLOPHOSPHAMIDE
     Dosage: MOST RECENT DOSE, 1398 MG
     Route: 042
     Dates: start: 20160704
  24. MILURIT [Concomitant]
     Active Substance: ALLOPURINOL
     Route: 065
     Dates: start: 20160713
  25. BETALOC [Concomitant]
     Active Substance: METOPROLOL TARTRATE
     Indication: ATRIAL FIBRILLATION
     Dosage: METROPROLOL RETARD
     Route: 042
     Dates: start: 20160614, end: 20160614
  26. DIFLUCAN [Concomitant]
     Active Substance: FLUCONAZOLE
     Indication: MUCOSAL INFLAMMATION
     Route: 065
     Dates: start: 20160613
  27. RITUXIMAB [Suspect]
     Active Substance: RITUXIMAB
     Dosage: MOST RECENT DOSE, 699 MG
     Route: 042
     Dates: start: 20160704
  28. DORETA [Concomitant]
     Active Substance: ACETAMINOPHEN\TRAMADOL HYDROCHLORIDE
     Indication: PRODUCT USED FOR UNKNOWN INDICATION
     Route: 065
     Dates: start: 20160527
  29. ATARALGIN [Concomitant]
     Active Substance: ACETAMINOPHEN\CAFFEINE\GUAIFENESIN
     Indication: HEADACHE
     Route: 065
     Dates: start: 20160714, end: 20160714
  30. VINCRISTINE [Suspect]
     Active Substance: VINCRISTINE
     Indication: NON-HODGKIN^S LYMPHOMA
     Dosage: ON DAY 1
     Route: 042
     Dates: start: 20160606
  31. BETALOC SR [Concomitant]
     Indication: ATRIAL FIBRILLATION
     Route: 065
  32. TANTUM VERDE [Concomitant]
     Active Substance: BENZYDAMINE HYDROCHLORIDE
     Indication: STOMATITIS
     Route: 065
     Dates: start: 20160612, end: 20160616
  33. ENDOXAN 1G [Suspect]
     Active Substance: CYCLOPHOSPHAMIDE
     Indication: NON-HODGKIN^S LYMPHOMA
     Dosage: ON DAY 1
     Route: 042
     Dates: start: 20160606
  34. VENETOCLAX [Suspect]
     Active Substance: VENETOCLAX
     Indication: NON-HODGKIN^S LYMPHOMA
     Route: 048
     Dates: start: 20160609
  35. RITUXIMAB [Suspect]
     Active Substance: RITUXIMAB
     Indication: NON-HODGKIN^S LYMPHOMA
     Route: 042
     Dates: start: 20160606
  36. PREDNISONE. [Suspect]
     Active Substance: PREDNISONE
     Dosage: MOST RECENT DOSE
     Route: 048
     Dates: start: 20160708
  37. PRENEWEL [Concomitant]
     Active Substance: INDAPAMIDE\PERINDOPRIL ERBUMINE
     Indication: HYPERTENSION
     Route: 065
  38. FRAXIPARINE [Concomitant]
     Active Substance: NADROPARIN CALCIUM
     Indication: THROMBOSIS PROPHYLAXIS
     Route: 065
     Dates: start: 20160527
  39. SMECTA [Concomitant]
     Active Substance: MONTMORILLONITE
     Indication: DIARRHOEA
     Route: 065
     Dates: start: 20160612, end: 20160614
  40. FRONTIN [Concomitant]
     Active Substance: ALPRAZOLAM
     Indication: ATRIAL FIBRILLATION
     Route: 065
     Dates: start: 20160614, end: 20160615
  41. PARACETAMOL [Concomitant]
     Active Substance: ACETAMINOPHEN
     Indication: PREMEDICATION
     Route: 065
     Dates: start: 20160704, end: 20160704
  42. NUTRIDRINK [Concomitant]
     Route: 065
     Dates: start: 20160714, end: 20160719
  43. ZOFRAN [Concomitant]
     Active Substance: ONDANSETRON HYDROCHLORIDE
     Indication: ANTIEMETIC SUPPORTIVE CARE
     Route: 065
     Dates: start: 20160704, end: 20160704
  44. DOXORUBICIN [Suspect]
     Active Substance: DOXORUBICIN
     Indication: NON-HODGKIN^S LYMPHOMA
     Dosage: ON DAY 1
     Route: 042
     Dates: start: 20160606
  45. DOXORUBICIN [Suspect]
     Active Substance: DOXORUBICIN
     Dosage: MOST RECENT DOSE, 98 MG
     Route: 042
     Dates: start: 20160704
  46. VINCRISTINE [Suspect]
     Active Substance: VINCRISTINE
     Dosage: MOST RECENT DOSE, 2 MG
     Route: 042
     Dates: start: 20160704
  47. PREDNISONE. [Suspect]
     Active Substance: PREDNISONE
     Indication: NON-HODGKIN^S LYMPHOMA
     Dosage: EVERY DAY ON DAYS 1-5
     Route: 048
     Dates: start: 20160606
  48. MILURIT [Concomitant]
     Active Substance: ALLOPURINOL
     Indication: HYPERURICAEMIA
     Route: 065
     Dates: start: 201603, end: 20160620
  49. NUTRIDRINK [Concomitant]
     Indication: NUTRITIONAL SUPPLEMENTATION
     Dosage: FOR ENTERAL ALIMETATION
     Route: 065
     Dates: start: 20160615, end: 20160616

REACTIONS (2)
  - Febrile neutropenia [Recovered/Resolved]
  - Diarrhoea [Unknown]

NARRATIVE: CASE EVENT DATE: 20160713
